FAERS Safety Report 15243334 (Version 1)
Quarter: 2018Q3

REPORT INFORMATION
  Report Type: Spontaneous
  Country: KR (occurrence: KR)
  Receive Date: 20180806
  Receipt Date: 20180806
  Transmission Date: 20181010
  Serious: Yes (Other)
  Sender: FDA-Public Use
  Company Number: KR-BAYER-2018-137206

PATIENT
  Age: 63 Year
  Sex: Female

DRUGS (11)
  1. NEXAVAR [Suspect]
     Active Substance: SORAFENIB
     Indication: THYROID CANCER
     Dosage: DAILY DOSE 800 MG
     Route: 048
     Dates: start: 20141205
  2. NEXAVAR [Suspect]
     Active Substance: SORAFENIB
     Indication: THYROID CANCER
     Dosage: DAILY DOSE 800 MG
     Route: 048
     Dates: start: 20150423, end: 2015
  3. NEXAVAR [Suspect]
     Active Substance: SORAFENIB
     Indication: THYROID CANCER
     Dosage: DAILY DOSE 400 MG
     Route: 048
     Dates: start: 201502, end: 2015
  4. NEXAVAR [Suspect]
     Active Substance: SORAFENIB
     Indication: THYROID CANCER
     Dosage: DAILY DOSE 600 MG
     Route: 048
     Dates: start: 20150326, end: 2015
  5. LENVATINIB [Concomitant]
     Active Substance: LENVATINIB
     Dosage: DAILY DOSE 10 MG
  6. NEXAVAR [Suspect]
     Active Substance: SORAFENIB
     Indication: THYROID CANCER
     Dosage: DAILY DOSE 400 MG
     Route: 048
     Dates: start: 2015, end: 2015
  7. NEXAVAR [Suspect]
     Active Substance: SORAFENIB
     Indication: THYROID CANCER
     Dosage: DAILY DOSE 800 MG
     Route: 048
     Dates: start: 201508, end: 2015
  8. NEXAVAR [Suspect]
     Active Substance: SORAFENIB
     Indication: THYROID CANCER
     Dosage: DAILY DOSE 800 MG
     Route: 048
     Dates: start: 20160722, end: 2016
  9. LENVATINIB [Concomitant]
     Active Substance: LENVATINIB
     Dosage: DAILY DOSE 14 MG
  10. NEXAVAR [Suspect]
     Active Substance: SORAFENIB
     Indication: THYROID CANCER
     Dosage: DAILY DOSE 600 MG
     Route: 048
     Dates: start: 201502, end: 201502
  11. LENVATINIB [Concomitant]
     Active Substance: LENVATINIB
     Dosage: DAILY DOSE 24 MG
     Dates: start: 201608

REACTIONS (15)
  - Thyroid cancer [None]
  - Lymphadenopathy [None]
  - Diarrhoea [None]
  - Palmar-plantar erythrodysaesthesia syndrome [None]
  - Palmar-plantar erythrodysaesthesia syndrome [None]
  - Pelvic mass [None]
  - Pubic pain [Recovering/Resolving]
  - Palmar-plantar erythrodysaesthesia syndrome [None]
  - Pulmonary mass [None]
  - Thyroxine decreased [None]
  - Diarrhoea [None]
  - Palmar-plantar erythrodysaesthesia syndrome [None]
  - Alopecia [None]
  - Palmar-plantar erythrodysaesthesia syndrome [None]
  - Hypertension [None]

NARRATIVE: CASE EVENT DATE: 20141219
